FAERS Safety Report 6344590-0 (Version None)
Quarter: 2009Q3

REPORT INFORMATION
  Report Type: 
  Country: None (occurrence: None)
  Receive Date: 20090908
  Receipt Date: 20090901
  Transmission Date: 20100115
  Serious: Yes (Hospitalization)
  Sender: FDA-Public Use
  Company Number: FR-GILEAD-2009-0024042

PATIENT
  Age: 54 Year
  Sex: Male

DRUGS (4)
  1. TRUVADA [Suspect]
  2. PREZISTA [Concomitant]
  3. NORVIR [Concomitant]
     Indication: HIV INFECTION
  4. REYATAZ [Concomitant]

REACTIONS (2)
  - NEPHROLITHIASIS [None]
  - RENAL COLIC [None]
